FAERS Safety Report 9012736 (Version 3)
Quarter: 2013Q4

REPORT INFORMATION
  Report Type: Spontaneous
  Country: US (occurrence: US)
  Receive Date: 20130114
  Receipt Date: 20131223
  Transmission Date: 20140711
  Serious: Yes (Other)
  Sender: FDA-Public Use
  Company Number: US-009507513-1301USA005260

PATIENT
  Sex: Female
  Weight: 74.83 kg

DRUGS (2)
  1. NUVARING [Suspect]
     Indication: CONTRACEPTION
     Dosage: UNK
     Route: 067
     Dates: start: 200608, end: 200809
  2. NUVARING [Suspect]
     Dosage: UNK
     Route: 067
     Dates: start: 201110, end: 201111

REACTIONS (7)
  - Pulmonary embolism [Unknown]
  - Deep vein thrombosis [Unknown]
  - Coagulopathy [Unknown]
  - Migraine [Not Recovered/Not Resolved]
  - Urinary tract infection [Unknown]
  - Uterine stenosis [Unknown]
  - Cough [Unknown]
